FAERS Safety Report 5922114-7 (Version None)
Quarter: 2008Q4

REPORT INFORMATION
  Report Type: 
  Country: None (occurrence: None)
  Receive Date: 20081017
  Receipt Date: 20081006
  Transmission Date: 20090506
  Serious: Yes (Hospitalization)
  Sender: FDA-Public Use
  Company Number: DE-BAYER-200820429GPV

PATIENT
  Age: 31 Year
  Sex: Female
  Weight: 71 kg

DRUGS (3)
  1. MIRENA [Suspect]
     Indication: CONTRACEPTION
     Route: 015
     Dates: start: 20071201, end: 20080606
  2. LEVOTHYROXINE SODIUM [Concomitant]
     Indication: THYROIDECTOMY
     Dosage: UNIT DOSE: 100 ?G
     Route: 048
  3. LEVOTHYROXINE SODIUM [Concomitant]
     Route: 048

REACTIONS (39)
  - ABDOMINAL PAIN [None]
  - ADVERSE EVENT [None]
  - AGGRESSION [None]
  - ALOPECIA [None]
  - ANOREXIA [None]
  - ANXIETY [None]
  - BREAST PAIN [None]
  - CONSTIPATION [None]
  - CYSTITIS [None]
  - DEPRESSION [None]
  - DIZZINESS [None]
  - DRY SKIN [None]
  - DYSPAREUNIA [None]
  - DYSPNOEA [None]
  - FACE OEDEMA [None]
  - FATIGUE [None]
  - FEELING COLD [None]
  - FLATULENCE [None]
  - FLUID RETENTION [None]
  - HEADACHE [None]
  - HYPERHIDROSIS [None]
  - INCREASED APPETITE [None]
  - IRRITABILITY [None]
  - LETHARGY [None]
  - MUSCLE SPASMS [None]
  - MUSCLE TIGHTNESS [None]
  - MUSCULOSKELETAL DISCOMFORT [None]
  - NASOPHARYNGITIS [None]
  - PAIN [None]
  - PALPITATIONS [None]
  - PRURITUS GENERALISED [None]
  - SENSATION OF FOREIGN BODY [None]
  - SKIN DISORDER [None]
  - SKIN EXFOLIATION [None]
  - SLEEP DISORDER [None]
  - THYROID DISORDER [None]
  - TINNITUS [None]
  - VIRAL INFECTION [None]
  - WEIGHT INCREASED [None]
